FAERS Safety Report 5069834-7 (Version None)
Quarter: 2006Q3

REPORT INFORMATION
  Report Type: 
  Country: None (occurrence: None)
  Receive Date: 20060803
  Receipt Date: 20060724
  Transmission Date: 20061208
  Serious: Yes (Hospitalization)
  Sender: FDA-Public Use
  Company Number: PHRM2006FR02160

PATIENT
  Age: 79 Year
  Sex: Male

DRUGS (5)
  1. VOLTAREN [Suspect]
     Indication: OSTEOARTHRITIS
     Dosage: 50 MG, UNK
     Route: 048
     Dates: start: 20060609, end: 20060610
  2. PLAVIX [Concomitant]
     Route: 048
  3. BI-TILDIEM [Concomitant]
     Route: 048
  4. TAREG [Concomitant]
     Route: 048
  5. ASPIRIN [Concomitant]
     Route: 048

REACTIONS (3)
  - DIPLOPIA [None]
  - HYPOAESTHESIA [None]
  - VISION BLURRED [None]
